FAERS Safety Report 18267572 (Version 3)
Quarter: 2021Q1

REPORT INFORMATION
  Report Type: Spontaneous
  Country: US (occurrence: US)
  Receive Date: 20200915
  Receipt Date: 20210113
  Transmission Date: 20210419
  Serious: Yes (Hospitalization, Disabling, Other)
  Sender: FDA-Public Use
  Company Number: US-PURACAP PHARMACEUTICAL LLC-2020EPC00265

PATIENT
  Age: 56 Year
  Sex: Female

DRUGS (2)
  1. UNSPECIFIED ^DOCTOR GIVEN^ MEDICATIONS [Concomitant]
  2. IBUPROFEN. [Suspect]
     Active Substance: IBUPROFEN
     Indication: BACK PAIN
     Dosage: 200 MG, 3X/DAY (EVERY 8 HOURS), EVERY COUPLE OF DAYS
     Route: 048
     Dates: start: 2019

REACTIONS (34)
  - Ischaemic stroke [Recovered/Resolved]
  - Bedridden [Unknown]
  - Contusion [Unknown]
  - Decreased activity [Not Recovered/Not Resolved]
  - Crying [Unknown]
  - Hospitalisation [Not Recovered/Not Resolved]
  - Gait disturbance [Not Recovered/Not Resolved]
  - Headache [Not Recovered/Not Resolved]
  - Excessive eye blinking [Not Recovered/Not Resolved]
  - Urinary incontinence [Unknown]
  - Vomiting [Not Recovered/Not Resolved]
  - Unevaluable event [Unknown]
  - Hemiplegia [Not Recovered/Not Resolved]
  - Amnesia [Not Recovered/Not Resolved]
  - Pain [Not Recovered/Not Resolved]
  - Malaise [Not Recovered/Not Resolved]
  - Vision blurred [Not Recovered/Not Resolved]
  - Throat irritation [Not Recovered/Not Resolved]
  - Optic ischaemic neuropathy [Recovered/Resolved]
  - Hypoaesthesia [Not Recovered/Not Resolved]
  - Illness [Not Recovered/Not Resolved]
  - Cardiac disorder [Unknown]
  - Loss of consciousness [Unknown]
  - Head injury [Unknown]
  - Vertigo [Not Recovered/Not Resolved]
  - Mastication disorder [Not Recovered/Not Resolved]
  - Muscle spasms [Unknown]
  - Burning sensation [Not Recovered/Not Resolved]
  - Nystagmus [Not Recovered/Not Resolved]
  - Dizziness [Not Recovered/Not Resolved]
  - Drug ineffective [Unknown]
  - Injury [Unknown]
  - Syncope [Not Recovered/Not Resolved]
  - Fall [Unknown]

NARRATIVE: CASE EVENT DATE: 201911
